FAERS Safety Report 7086846-2 (Version None)
Quarter: 2010Q4

REPORT INFORMATION
  Report Type: 
  Country: None (occurrence: None)
  Receive Date: 20101105
  Receipt Date: 20101026
  Transmission Date: 20110411
  Serious: Yes (Death)
  Sender: FDA-Public Use
  Company Number: US-AMGEN GMBH-QUU438196

PATIENT

DRUGS (13)
  1. NPLATE [Suspect]
     Indication: IDIOPATHIC THROMBOCYTOPENIC PURPURA
     Dosage: 150 A?G, UNK
     Dates: start: 20080919, end: 20090811
  2. IMMU-G [Concomitant]
     Dosage: UNK UNK, UNK
     Dates: start: 19950127
  3. AMICAR [Concomitant]
     Dosage: UNK
     Dates: start: 20081028, end: 20100130
  4. ARICEPT                            /01318901/ [Concomitant]
     Dosage: UNK
     Dates: start: 20090414, end: 20100130
  5. CARDIZEM [Concomitant]
     Dosage: UNK
     Dates: start: 20070524, end: 20100130
  6. DARVOCET [Concomitant]
     Dosage: UNK
     Dates: start: 20080922, end: 20100130
  7. DEPAKOTE [Concomitant]
     Dosage: UNK
     Dates: start: 20090819, end: 20100130
  8. ENABLEX                            /01760401/ [Concomitant]
     Dosage: UNK
     Dates: start: 20080521, end: 20100130
  9. FOLIC ACID [Concomitant]
     Dosage: UNK
     Dates: start: 20090414, end: 20100130
  10. FUROSEMIDE [Concomitant]
     Dosage: UNK
     Dates: start: 20090414, end: 20100130
  11. HYDRALAZINE                        /00007602/ [Concomitant]
     Dosage: UNK
     Dates: start: 20090414, end: 20100113
  12. HYDROCHLOROTHIAZIDE [Concomitant]
     Dosage: UNK
     Dates: end: 20100130
  13. DURAGESIC-100 [Concomitant]
     Dosage: UNK
     Dates: start: 20090819, end: 20100130

REACTIONS (1)
  - DEATH [None]
